FAERS Safety Report 4550719-7 (Version None)
Quarter: 2004Q4

REPORT INFORMATION
  Report Type: 
  Country: None (occurrence: None)
  Receive Date: 20041217
  Receipt Date: 20040915
  Transmission Date: 20050328
  Serious: No
  Sender: FDA-Public Use
  Company Number: 2004-BP-08307BP

PATIENT
  Age: 70 Year
  Sex: Male
  Weight: 89.8 kg

DRUGS (5)
  1. SPIRIVA [Suspect]
     Indication: CHRONIC OBSTRUCTIVE AIRWAYS DISEASE
     Dosage: 18 MCG (18 MCG), IH
     Route: 055
  2. XANAX [Concomitant]
  3. FLOMAX [Concomitant]
  4. TYLENOL [Concomitant]
  5. COMBIVENT [Concomitant]

REACTIONS (1)
  - ERECTILE DYSFUNCTION [None]
